FAERS Safety Report 4373921-6 (Version None)
Quarter: 2004Q1

REPORT INFORMATION
  Report Type: 
  Country: None (occurrence: None)
  Receive Date: 20040305
  Receipt Date: 20031209
  Transmission Date: 20041129
  Serious: Yes (Other)
  Sender: FDA-Public Use
  Company Number: 2003UW16324

PATIENT
  Sex: Female

DRUGS (4)
  1. CRESTOR [Suspect]
     Indication: BLOOD CHOLESTEROL INCREASED
     Dosage: 10 MG PO
     Route: 048
  2. MULTIVITAMIN [Concomitant]
  3. METAMUCIL-2 [Concomitant]
  4. NASACORT [Concomitant]

REACTIONS (1)
  - SOMNOLENCE [None]
